FAERS Safety Report 7424299-2 (Version None)
Quarter: 2011Q2

REPORT INFORMATION
  Report Type: 
  Country: None (occurrence: None)
  Receive Date: 20110405
  Receipt Date: 20110322
  Transmission Date: 20111010
  Serious: No
  Sender: FDA-Public Use
  Company Number: US-145172

PATIENT
  Sex: Male
  Weight: 119.3 kg

DRUGS (6)
  1. PREDNISONE [Concomitant]
  2. WINRHO SDF LIQUID [Suspect]
     Indication: THROMBOCYTOPENIC PURPURA
     Dosage: (50.29 ?G/KG TOTAL INTRAVENOUS BOLUS)
     Route: 040
     Dates: start: 20101006, end: 20101006
  3. HERBALS NOS W/VITAMINS NOS [Concomitant]
  4. ACETAMINOPHEN [Concomitant]
  5. METFORMIN [Concomitant]
  6. CLARITIN [Concomitant]

REACTIONS (12)
  - NO THERAPEUTIC RESPONSE [None]
  - ABDOMINAL DISTENSION [None]
  - URINE ABNORMALITY [None]
  - MUSCULAR WEAKNESS [None]
  - NAUSEA [None]
  - BLOOD URINE PRESENT [None]
  - CHILLS [None]
  - ABDOMINAL PAIN [None]
  - DIZZINESS [None]
  - MALAISE [None]
  - INFLUENZA LIKE ILLNESS [None]
  - NEPHROLITHIASIS [None]
